FAERS Safety Report 11149584 (Version 2)
Quarter: 2015Q2

REPORT INFORMATION
  Report Type: Spontaneous
  Country: US (occurrence: US)
  Receive Date: 20150529
  Receipt Date: 20150605
  Transmission Date: 20150821
  Serious: Yes (Hospitalization)
  Sender: FDA-Public Use
  Company Number: US-ENDO PHARMACEUTICALS INC.-2015-001100

PATIENT
  Age: 57 Year
  Sex: Male
  Weight: 72.64 kg

DRUGS (8)
  1. STOOL SOFTENER [Concomitant]
     Active Substance: DOCUSATE CALCIUM
     Indication: PRODUCT USED FOR UNKNOWN INDICATION
  2. NORCO [Concomitant]
     Active Substance: ACETAMINOPHEN\HYDROCODONE BITARTRATE
     Indication: PRODUCT USED FOR UNKNOWN INDICATION
     Dosage: 1-2 TABLETS
     Route: 048
  3. SAW PALMETTO [Concomitant]
     Active Substance: SAW PALMETTO
     Indication: PRODUCT USED FOR UNKNOWN INDICATION
  4. XIAFLEX [Suspect]
     Active Substance: COLLAGENASE CLOSTRIDIUM HISTOLYTICUM
     Indication: PEYRONIE^S DISEASE
     Route: 026
     Dates: start: 20141118, end: 20150520
  5. RAPAFLO [Concomitant]
     Active Substance: SILODOSIN
     Indication: PROSTATOMEGALY
  6. XIAFLEX [Suspect]
     Active Substance: COLLAGENASE CLOSTRIDIUM HISTOLYTICUM
     Indication: PEYRONIE^S DISEASE
  7. ASPIRIN. [Concomitant]
     Active Substance: ASPIRIN
     Indication: PRODUCT USED FOR UNKNOWN INDICATION
  8. LOCAL ANESTHETICS [Concomitant]
     Active Substance: UNSPECIFIED INGREDIENT
     Indication: LOCAL ANAESTHESIA
     Dates: start: 20150520, end: 20150520

REACTIONS (7)
  - Dyspnoea [Recovering/Resolving]
  - Exercise tolerance decreased [Recovering/Resolving]
  - Penile pain [Recovering/Resolving]
  - Penile haematoma [Recovering/Resolving]
  - Scrotal pain [Recovering/Resolving]
  - Immediate post-injection reaction [Recovering/Resolving]
  - Penile swelling [Recovering/Resolving]

NARRATIVE: CASE EVENT DATE: 20150520
